FAERS Safety Report 5034845-4 (Version None)
Quarter: 2006Q2

REPORT INFORMATION
  Report Type: 
  Country: None (occurrence: None)
  Receive Date: 20060627
  Receipt Date: 20060621
  Transmission Date: 20061013
  Serious: Yes (Death)
  Sender: FDA-Public Use
  Company Number: PHBS2006US09345

PATIENT
  Age: 82 Year
  Sex: Male

DRUGS (8)
  1. LOPRESSOR [Suspect]
  2. PROTONIX [Suspect]
  3. LASIX [Suspect]
  4. AMIODARONE HCL [Suspect]
  5. NEURONTIN [Suspect]
  6. TYLENOL (CAPLET) [Suspect]
  7. ASPIRIN [Suspect]
  8. POTASSIUM CHLORIDE [Suspect]

REACTIONS (16)
  - BILIARY TRACT DISORDER [None]
  - CHOLESTASIS [None]
  - DIARRHOEA [None]
  - DYSPHAGIA [None]
  - GRAFT VERSUS HOST DISEASE [None]
  - HAEMOGLOBIN DECREASED [None]
  - HYPERBILIRUBINAEMIA [None]
  - LEUKOPENIA [None]
  - PHARYNGOLARYNGEAL PAIN [None]
  - PLATELET COUNT DECREASED [None]
  - RASH ERYTHEMATOUS [None]
  - SEPSIS [None]
  - SKIN HYPOPLASIA [None]
  - STEVENS-JOHNSON SYNDROME [None]
  - SYSTEMIC CANDIDA [None]
  - WHITE BLOOD CELL COUNT DECREASED [None]
